FAERS Safety Report 8265212-8 (Version None)
Quarter: 2012Q2

REPORT INFORMATION
  Report Type: 
  Country: None (occurrence: None)
  Receive Date: 20120406
  Receipt Date: 20120326
  Transmission Date: 20120825
  Serious: Yes (Hospitalization)
  Sender: FDA-Public Use
  Company Number: DE-PFIZER INC-2012084982

PATIENT
  Sex: Female

DRUGS (6)
  1. TERBINAFINE [Suspect]
     Indication: TINEA INFECTION
     Dosage: UNK
     Dates: start: 20050101
  2. TORASEMIDE [Suspect]
     Indication: AORTIC VALVE REPLACEMENT
  3. AMIODARONE HCL [Suspect]
     Indication: AORTIC VALVE REPLACEMENT
  4. LOSARTAN POTASSIUM [Suspect]
     Indication: AORTIC VALVE REPLACEMENT
  5. BISOPROLOL FUMARATE [Suspect]
     Indication: PRODUCT USED FOR UNKNOWN INDICATION
  6. ASPIRIN TAB [Suspect]
     Indication: PRODUCT USED FOR UNKNOWN INDICATION

REACTIONS (1)
  - CUTANEOUS LUPUS ERYTHEMATOSUS [None]
